FAERS Safety Report 25129459 (Version 2)
Quarter: 2025Q2

REPORT INFORMATION
  Report Type: Spontaneous
  Country: US (occurrence: US)
  Receive Date: 20250327
  Receipt Date: 20250421
  Transmission Date: 20250717
  Serious: No
  Sender: CSL BEHRING
  Company Number: US-BEH-2025200027

PATIENT

DRUGS (1)
  1. VELPHORO [Suspect]
     Active Substance: SUCROFERRIC OXYHYDROXIDE
     Indication: Product used for unknown indication
     Route: 048

REACTIONS (1)
  - Tongue discolouration [Unknown]
